FAERS Safety Report 7996418-0 (Version None)
Quarter: 2011Q4

REPORT INFORMATION
  Report Type: 
  Country: None (occurrence: None)
  Receive Date: 20111220
  Receipt Date: 20111205
  Transmission Date: 20120403
  Serious: Yes (Other)
  Sender: FDA-Public Use
  Company Number: KR-WATSON-2011-21793

PATIENT
  Age: 40 Year
  Sex: Female

DRUGS (3)
  1. GINEXIN [Suspect]
     Indication: OEDEMA PERIPHERAL
  2. HYDROCHLOROTHIAZIDE [Suspect]
     Indication: OEDEMA PERIPHERAL
     Route: 065
  3. SPIRONOLACTONE [Suspect]
     Indication: OEDEMA PERIPHERAL
     Route: 065

REACTIONS (4)
  - CONJUNCTIVAL OEDEMA [None]
  - VISUAL IMPAIRMENT [None]
  - FLAT ANTERIOR CHAMBER OF EYE [None]
  - MYOPIA [None]
